FAERS Safety Report 5270759-2 (Version None)
Quarter: 2007Q1

REPORT INFORMATION
  Report Type: 
  Country: None (occurrence: None)
  Receive Date: 20070321
  Receipt Date: 20070308
  Transmission Date: 20070707
  Serious: Yes (Other)
  Sender: FDA-Public Use
  Company Number: PHBS2007JP03657

PATIENT
  Age: 71 Year
  Sex: Female

DRUGS (3)
  1. TEGRETOL [Suspect]
     Indication: TRIGEMINAL NEURALGIA
     Dosage: 200 MG/DAY
     Route: 048
     Dates: start: 20070209, end: 20070211
  2. DEPAS [Concomitant]
     Dosage: 0.5 MG/DAY
     Route: 048
     Dates: start: 20070210, end: 20070211
  3. NEUROTROPIN [Concomitant]
     Dosage: 3 DF/DAY
     Route: 048
     Dates: start: 20070209, end: 20070211

REACTIONS (5)
  - DYSPHONIA [None]
  - GLOSSITIS [None]
  - NASOPHARYNGITIS [None]
  - ORAL MUCOSA EROSION [None]
  - STOMATITIS [None]
